FAERS Safety Report 15552108 (Version 1)
Quarter: 2018Q4

REPORT INFORMATION
  Report Type: Report from Study
  Country: US (occurrence: US)
  Receive Date: 20181025
  Receipt Date: 20181025
  Transmission Date: 20190205
  Serious: Yes (Other)
  Sender: FDA-Public Use
  Company Number: US-MYLANLABS-2018M1077562

PATIENT

DRUGS (4)
  1. TOPOTECAN [Suspect]
     Active Substance: TOPOTECAN HYDROCHLORIDE
     Indication: NEUROBLASTOMA
     Dosage: ON DAYS 1 AND 3
     Route: 042
  2. VINCRISTINE [Suspect]
     Active Substance: VINCRISTINE
     Indication: NEUROBLASTOMA
     Dosage: ON DAY 1
     Route: 042
  3. MONOCLONAL ANTIBODIES [Suspect]
     Active Substance: UNSPECIFIED INGREDIENT
     Indication: NEUROBLASTOMA
     Dosage: ON DAYS 8-12; OVER 0.5-1.5HOURS.
     Route: 041
  4. CYCLOPHOSPHAMIDE. [Suspect]
     Active Substance: CYCLOPHOSPHAMIDE
     Indication: NEUROBLASTOMA
     Dosage: ON DAYS 1 AND 2
     Route: 042

REACTIONS (3)
  - Hypertension [Recovered/Resolved]
  - Febrile neutropenia [Recovered/Resolved]
  - Pneumonitis [Recovered/Resolved]
